FAERS Safety Report 6537397-2 (Version None)
Quarter: 2010Q1

REPORT INFORMATION
  Report Type: 
  Country: None (occurrence: None)
  Receive Date: 20100110
  Receipt Date: 20091228
  Transmission Date: 20100710
  Serious: Yes (Hospitalization)
  Sender: FDA-Public Use
  Company Number: 230017J09CHE

PATIENT
  Age: 53 Year
  Sex: Female
  Weight: 57 kg

DRUGS (1)
  1. REBIF [Suspect]
     Indication: MULTIPLE SCLEROSIS
     Dosage: 44 MCG, 3 IN 1 WEEKS, SUBCUTANEOUS
     Route: 058
     Dates: start: 20090101

REACTIONS (2)
  - INJECTION SITE CELLULITIS [None]
  - PRODUCT FORMULATION ISSUE [None]
